FAERS Safety Report 6908346-X (Version None)
Quarter: 2010Q3

REPORT INFORMATION
  Report Type: 
  Country: None (occurrence: None)
  Receive Date: 20100805
  Receipt Date: 20100730
  Transmission Date: 20110219
  Serious: Yes (Death)
  Sender: FDA-Public Use
  Company Number: JP-ALLERGAN-1009568US

PATIENT
  Age: 78 Year
  Sex: Male

DRUGS (4)
  1. BOTOX INJECTION 100 [Suspect]
     Indication: TORTICOLLIS
     Dosage: 18 UNITS, SINGLE
     Route: 030
     Dates: start: 20091126, end: 20091126
  2. BOTOX INJECTION 100 [Suspect]
     Dosage: 18 UNITS, SINGLE
     Route: 030
     Dates: start: 20090917, end: 20090917
  3. WARFARIN [Suspect]
     Indication: CEREBRAL INFARCTION
     Dosage: 2.125 DF, QD
     Route: 048
     Dates: start: 20090628, end: 20100106
  4. ZOLOFT [Concomitant]
     Indication: DEPRESSION
     Dosage: 25 MG, QD
     Route: 048
     Dates: start: 20090702, end: 20100106

REACTIONS (1)
  - CEREBRAL HAEMORRHAGE [None]
